FAERS Safety Report 26035214 (Version 1)
Quarter: 2025Q4

REPORT INFORMATION
  Report Type: Spontaneous
  Country: US (occurrence: US)
  Receive Date: 20251112
  Receipt Date: 20251112
  Transmission Date: 20260117
  Serious: Yes (Other)
  Sender: RADIUS PHARM
  Company Number: US-RADIUS HEALTH INC.-US-RADIUS-25053920

PATIENT
  Sex: Male

DRUGS (2)
  1. TYMLOS [Suspect]
     Active Substance: ABALOPARATIDE
     Indication: Product used for unknown indication
     Dosage: 80 MICROGRAM, TWICE DAILY
     Route: 058
     Dates: end: 20250916
  2. TYMLOS [Suspect]
     Active Substance: ABALOPARATIDE
     Dosage: 80 MICROGRAM, QD
     Route: 058

REACTIONS (7)
  - Mental impairment [Unknown]
  - Headache [Unknown]
  - Tachycardia [Unknown]
  - Confusional state [Unknown]
  - Nocturia [Unknown]
  - Insomnia [Unknown]
  - Product use issue [Unknown]
